FAERS Safety Report 15460753 (Version 4)
Quarter: 2019Q1

REPORT INFORMATION
  Report Type: Report from Study
  Country: DE (occurrence: DE)
  Receive Date: 20181003
  Receipt Date: 20190228
  Transmission Date: 20190417
  Serious: Yes (Hospitalization)
  Sender: FDA-Public Use
  Company Number: DE-MYLANLABS-2018M1002638

PATIENT
  Age: 84 Year
  Sex: Male
  Weight: 62 kg

DRUGS (42)
  1. IRINOTECAN [Suspect]
     Active Substance: IRINOTECAN
     Dosage: 225 MG, UNK
     Route: 042
  2. AVASTIN [Suspect]
     Active Substance: BEVACIZUMAB
     Indication: COLORECTAL CANCER
     Dosage: 325 MG, INTERVAL- 2 WEEK
     Route: 042
     Dates: start: 20160512
  3. DIFLUCAN [Concomitant]
     Active Substance: FLUCONAZOLE
     Dosage: UNK
     Route: 065
  4. AVASTIN [Suspect]
     Active Substance: BEVACIZUMAB
     Dosage: 300 MG, UNK
     Route: 042
  5. FOLINIC ACID [Suspect]
     Active Substance: LEUCOVORIN
     Indication: PRODUCT USED FOR UNKNOWN INDICATION
     Dosage: 700 MG, Q2W,700 MG, INTERVAL- 2 WEEK
     Route: 042
     Dates: start: 20160512, end: 20170119
  6. DIFLUCAN [Concomitant]
     Active Substance: FLUCONAZOLE
     Indication: PRODUCT USED FOR UNKNOWN INDICATION
     Dosage: 100 MG, QD
     Route: 048
     Dates: start: 20170130, end: 20170219
  7. BRISERIN [Concomitant]
     Dosage: UNK
     Route: 048
  8. FOLINIC ACID [Suspect]
     Active Substance: LEUCOVORIN
     Dosage: UNK
     Route: 065
  9. 5-FLUOROURACIL                     /00098801/ [Suspect]
     Active Substance: FLUOROURACIL
     Dosage: UNK
     Route: 065
  10. SPASMEX                            /00376202/ [Concomitant]
     Active Substance: TROSPIUM CHLORIDE
     Dosage: 15 MG, QD
     Route: 048
  11. IRINOTECAN [Suspect]
     Active Substance: IRINOTECAN
     Dosage: 315 MG, Q2W, 315 MG, INTERVAL- 2 WEEK
     Route: 042
     Dates: start: 20160512
  12. IRINOTECAN [Suspect]
     Active Substance: IRINOTECAN
     Dosage: 300 MG, UNK
     Route: 042
  13. AVASTIN [Suspect]
     Active Substance: BEVACIZUMAB
     Dosage: UNK
     Route: 042
  14. AVASTIN [Suspect]
     Active Substance: BEVACIZUMAB
     Dosage: 325 MG, UNK
     Route: 042
  15. AVASTIN [Suspect]
     Active Substance: BEVACIZUMAB
     Dosage: 290 MG, UNK
     Route: 042
  16. FOLINIC ACID [Suspect]
     Active Substance: LEUCOVORIN
     Dosage: 670 MG, UNK
     Route: 041
     Dates: start: 20160610, end: 20170120
  17. 5-FLUOROURACIL                     /00098801/ [Suspect]
     Active Substance: FLUOROURACIL
     Dosage: 4050 MG, INTERVAL- 2 WEEK
     Dates: start: 20160610, end: 20160611
  18. IRINOTECAN [Suspect]
     Active Substance: IRINOTECAN
     Indication: COLORECTAL CANCER
     Dosage: 300 MG, Q2W, 300 MG, INTERVAL- 2 WEEK
     Route: 042
     Dates: start: 20160610
  19. IRINOTECAN [Suspect]
     Active Substance: IRINOTECAN
     Dosage: 35 MILLIGRAM
     Route: 042
  20. AVASTIN [Suspect]
     Active Substance: BEVACIZUMAB
     Dosage: 300 MILLIGRAM, Q3W
     Route: 042
     Dates: start: 20160512
  21. AVASTIN [Suspect]
     Active Substance: BEVACIZUMAB
     Dosage: 315 MILLIGRAM, Q2W
     Route: 042
     Dates: start: 20160512
  22. BRISERIN [Concomitant]
     Indication: HYPERTENSION
     Dosage: 0.1 MG, QD
     Route: 048
  23. BRISERIN [Concomitant]
     Dosage: UNK
     Route: 065
  24. FLUOROURACIL. [Suspect]
     Active Substance: FLUOROURACIL
     Indication: COLORECTAL CANCER
     Dosage: UNK
     Route: 065
  25. IRINOTECAN [Suspect]
     Active Substance: IRINOTECAN
     Dosage: 220 MG, Q2W, 220 MG, INTERVAL- 2 WEEK
     Route: 042
     Dates: start: 20170119
  26. IRINOTECAN [Suspect]
     Active Substance: IRINOTECAN
     Dosage: 225 MG, INTERVAL- 2 WEEK
     Route: 042
     Dates: start: 20160628
  27. FOLINIC ACID [Suspect]
     Active Substance: LEUCOVORIN
     Dosage: 670 MG, INTERVAL- 2 WEEK
     Route: 041
     Dates: start: 20160610, end: 20170120
  28. 5-FLUOROURACIL                     /00098801/ [Suspect]
     Active Substance: FLUOROURACIL
     Dosage: 4200 MG, Q2W
     Route: 041
     Dates: start: 20160512, end: 20160513
  29. CLEXANE [Concomitant]
     Active Substance: ENOXAPARIN SODIUM
     Dosage: UNK
     Route: 065
  30. SPASMEX                            /00376202/ [Concomitant]
     Active Substance: TROSPIUM CHLORIDE
     Indication: PRODUCT USED FOR UNKNOWN INDICATION
     Dosage: 30 MG, QD
     Route: 048
  31. SPASMEX                            /00376202/ [Concomitant]
     Active Substance: TROSPIUM CHLORIDE
     Dosage: UNK
     Route: 065
  32. IRINOTECAN [Suspect]
     Active Substance: IRINOTECAN
     Dosage: 35 MG, UNK
     Route: 042
     Dates: start: 20160512
  33. IRINOTECAN [Suspect]
     Active Substance: IRINOTECAN
     Dosage: 220 MG, UNK
     Route: 042
  34. AVASTIN [Suspect]
     Active Substance: BEVACIZUMAB
     Indication: COLORECTAL CANCER METASTATIC
     Dosage: 300 MG, Q2W, 300 MG, INTERVAL- 2 WEEK
     Route: 042
     Dates: start: 20160610
  35. AVASTIN [Suspect]
     Active Substance: BEVACIZUMAB
     Dosage: 290 MG, Q2W, 290 MG, INTERVAL- 2 WEEK
     Route: 042
     Dates: start: 20170119
  36. 5-FLUOROURACIL                     /00098801/ [Suspect]
     Active Substance: FLUOROURACIL
     Indication: COLORECTAL CANCER
     Dosage: 700 MG, INTERVAL- 2 WEEK
     Route: 040
     Dates: start: 20160512
  37. 5-FLUOROURACIL                     /00098801/ [Suspect]
     Active Substance: FLUOROURACIL
     Dosage: 670 MG, Q2W
     Route: 040
     Dates: start: 20160610
  38. SPASMEX                            /00376202/ [Concomitant]
     Active Substance: TROSPIUM CHLORIDE
     Dosage: UNK
     Route: 048
  39. IRINOTECAN [Suspect]
     Active Substance: IRINOTECAN
     Dosage: 315 MG, UNK
     Route: 042
  40. DEXAMETHASONE. [Suspect]
     Active Substance: DEXAMETHASONE
     Indication: PRODUCT USED FOR UNKNOWN INDICATION
     Dosage: 4 MILLIGRAM, QD
     Route: 048
     Dates: start: 20161215
  41. DEXAMETHASONE. [Suspect]
     Active Substance: DEXAMETHASONE
     Dosage: UNK
     Route: 065
  42. CLEXANE [Concomitant]
     Active Substance: ENOXAPARIN SODIUM
     Indication: THROMBOSIS PROPHYLAXIS
     Dosage: 40 MG, QD
     Route: 058
     Dates: start: 20160512

REACTIONS (2)
  - Off label use [Unknown]
  - Mucosal inflammation [Recovered/Resolved]

NARRATIVE: CASE EVENT DATE: 20160617
